FAERS Safety Report 13675070 (Version 1)
Quarter: 2017Q2

REPORT INFORMATION
  Report Type: Spontaneous
  Country: US (occurrence: US)
  Receive Date: 20170621
  Receipt Date: 20170621
  Transmission Date: 20170830
  Serious: No
  Sender: FDA-Public Use
  Company Number: US-CELGENEUS-USA-20170602240

PATIENT
  Sex: Female

DRUGS (1)
  1. REVLIMID [Suspect]
     Active Substance: LENALIDOMIDE
     Indication: PLASMA CELL MYELOMA
     Dosage: 15 MILLIGRAM
     Route: 048
     Dates: start: 201610

REACTIONS (8)
  - Pain in extremity [Unknown]
  - Peripheral swelling [Unknown]
  - Skin sensitisation [Unknown]
  - Dyspnoea [Unknown]
  - Arthralgia [Unknown]
  - Joint swelling [Unknown]
  - Chest pain [Unknown]
  - Diarrhoea [Unknown]
